FAERS Safety Report 7227737-3 (Version None)
Quarter: 2011Q1

REPORT INFORMATION
  Report Type: 
  Country: None (occurrence: None)
  Receive Date: 20110111
  Receipt Date: 20110111
  Transmission Date: 20110831
  Serious: Yes (Life-Threatening, Hospitalization)
  Sender: FDA-Public Use
  Company Number: None

PATIENT
  Age: 20 Year
  Sex: Male
  Weight: 75.9 kg

DRUGS (1)
  1. FINGOLIMOD 0.5 MG GILENYA [Suspect]
     Indication: MULTIPLE SCLEROSIS
     Dosage: 0.5 MG QDAY PO THIS TOOK PLACE YESTERDAY
     Route: 048
     Dates: start: 20100108, end: 20100108

REACTIONS (2)
  - CARDIAC ARREST [None]
  - BRADYCARDIA [None]
